FAERS Safety Report 7651340-4 (Version None)
Quarter: 2011Q3

REPORT INFORMATION
  Report Type: 
  Country: None (occurrence: None)
  Receive Date: 20110802
  Receipt Date: 20110719
  Transmission Date: 20111222
  Serious: Yes (Hospitalization)
  Sender: FDA-Public Use
  Company Number: PHHY2011MX46335

PATIENT
  Sex: Female

DRUGS (2)
  1. ASPIRIN [Concomitant]
  2. DIOVAN HCT [Suspect]
     Indication: HYPERTENSION
     Dosage: 1 DF, (160/25 MG) PER DAY
     Dates: start: 20110501, end: 20110529

REACTIONS (7)
  - DIZZINESS [None]
  - SYNCOPE [None]
  - LOWER LIMB FRACTURE [None]
  - OEDEMA PERIPHERAL [None]
  - FALL [None]
  - FEMUR FRACTURE [None]
  - PAIN [None]
